FAERS Safety Report 14459622 (Version 1)
Quarter: 2018Q1

REPORT INFORMATION
  Report Type: Spontaneous
  Country: AU (occurrence: AU)
  Receive Date: 20180130
  Receipt Date: 20180130
  Transmission Date: 20180509
  Serious: Yes (Death)
  Sender: FDA-Public Use
  Company Number: AU-COLLEGIUM PHARMACEUTICAL, INC.-2018CGM00006

PATIENT
  Age: 39 Year
  Sex: Male

DRUGS (4)
  1. OXYCODONE [Suspect]
     Active Substance: OXYCODONE
     Route: 054
  2. METHADONE [Suspect]
     Active Substance: METHADONE HYDROCHLORIDE
     Route: 054
  3. OXAZEPAM. [Suspect]
     Active Substance: OXAZEPAM
     Route: 054
  4. NITRAZEPAM [Suspect]
     Active Substance: NITRAZEPAM
     Route: 054

REACTIONS (11)
  - Cardiac arrest [Fatal]
  - Renal tubular necrosis [Fatal]
  - Compartment syndrome [Fatal]
  - Brain injury [Fatal]
  - Toxicity to various agents [Fatal]
  - Overdose [Fatal]
  - Rhabdomyolysis [Fatal]
  - Pneumonia [Fatal]
  - Metabolic acidosis [Fatal]
  - Multiple organ dysfunction syndrome [Fatal]
  - Disseminated intravascular coagulation [Fatal]
